FAERS Safety Report 7518465-5 (Version None)
Quarter: 2011Q2

REPORT INFORMATION
  Report Type: 
  Country: None (occurrence: None)
  Receive Date: 20110601
  Receipt Date: 20110601
  Transmission Date: 20111010
  Serious: Yes (Disabling, Other)
  Sender: FDA-Public Use
  Company Number: None

PATIENT
  Age: 45 Year
  Sex: Female
  Weight: 95.2554 kg

DRUGS (1)
  1. CYMBALTA [Suspect]
     Indication: FIBROMYALGIA
     Dosage: ONE PILL ONCE A DAY
     Dates: start: 20100516, end: 20110331

REACTIONS (7)
  - BALANCE DISORDER [None]
  - IMPAIRED WORK ABILITY [None]
  - ANOSMIA [None]
  - ASTHENIA [None]
  - COORDINATION ABNORMAL [None]
  - GAIT DISTURBANCE [None]
  - FALL [None]
